FAERS Safety Report 6400194-2 (Version None)
Quarter: 2009Q4

REPORT INFORMATION
  Report Type: 
  Country: None (occurrence: None)
  Receive Date: 20091007
  Receipt Date: 20091007
  Transmission Date: 20100525
  Serious: Yes (Hospitalization)
  Sender: FDA-Public Use
  Company Number: None

PATIENT
  Age: 90 Year
  Sex: Female
  Weight: 40 kg

DRUGS (18)
  1. WARFARIN SODIUM [Suspect]
     Indication: ATRIAL FIBRILLATION
     Dosage: 1MG OR 2MG ALTERNATING DAILY ORAL
     Route: 048
     Dates: start: 20090317, end: 20090408
  2. LISINOPRIL [Concomitant]
  3. METOPROLOL [Concomitant]
  4. AMLODIPINE [Concomitant]
  5. ASPIRIN [Concomitant]
  6. ALENDRONATE SODIUM [Concomitant]
  7. CALCIUM W/VITAMIN D [Concomitant]
  8. MULTIVITAMIN [Concomitant]
  9. M.V.I. [Concomitant]
  10. APAP TAB [Concomitant]
  11. AMIODARONE [Concomitant]
  12. ALBUTEROL/IPRATROPIUM NEBULIZER [Concomitant]
  13. DIGOXIN [Concomitant]
  14. ESOMEPRAZOLE [Concomitant]
  15. FLUTICASONE/SALMETEROL [Concomitant]
  16. FUROSEMIDE [Concomitant]
  17. POTASSIUM CHLORIDE [Concomitant]
  18. SPIRONOLACTONE [Concomitant]

REACTIONS (2)
  - LOWER GASTROINTESTINAL HAEMORRHAGE [None]
  - PNEUMONIA [None]
